FAERS Safety Report 9490370 (Version 2)
Quarter: 2013Q3

REPORT INFORMATION
  Report Type: Spontaneous
  Country: US (occurrence: US)
  Receive Date: 20130830
  Receipt Date: 20130910
  Transmission Date: 20140515
  Serious: Yes (Death, Hospitalization)
  Sender: FDA-Public Use
  Company Number: US-AMGEN-USASP2013060132

PATIENT
  Age: 87 Year
  Sex: Female
  Weight: 47.17 kg

DRUGS (6)
  1. PROLIA [Suspect]
     Indication: OSTEOPOROSIS
     Dosage: 60 UNK, Q6MO
     Route: 058
  2. QUETIAPINE [Concomitant]
  3. MIRTAZAPINE [Concomitant]
  4. CARBIDOPA LEVODOPA [Concomitant]
  5. HYDROXYUREA [Concomitant]
  6. LEVOXYL [Concomitant]

REACTIONS (2)
  - Aspiration [Fatal]
  - Hypoxic-ischaemic encephalopathy [Fatal]
